FAERS Safety Report 7455483-X (Version None)
Quarter: 2011Q2

REPORT INFORMATION
  Report Type: 
  Country: None (occurrence: None)
  Receive Date: 20110503
  Receipt Date: 20110426
  Transmission Date: 20111010
  Serious: Yes (Hospitalization, Other)
  Sender: FDA-Public Use
  Company Number: US-ROCHE-743362

PATIENT
  Sex: Female
  Weight: 61.2 kg

DRUGS (3)
  1. ACCUTANE [Suspect]
     Indication: ACNE
     Route: 048
     Dates: start: 19890101
  2. DEMULEN 1/35-21 [Concomitant]
     Dosage: 1/35- 28 DAY
  3. ACCUTANE [Suspect]
     Route: 048
     Dates: end: 20021201

REACTIONS (10)
  - GASTROINTESTINAL INJURY [None]
  - INFLAMMATORY BOWEL DISEASE [None]
  - HAEMORRHOIDS [None]
  - ROAD TRAFFIC ACCIDENT [None]
  - ARTHRITIS [None]
  - COLITIS ULCERATIVE [None]
  - IRRITABLE BOWEL SYNDROME [None]
  - INTESTINAL OBSTRUCTION [None]
  - INTESTINAL ANASTOMOSIS COMPLICATION [None]
  - DEPRESSION [None]
